FAERS Safety Report 6555255-4 (Version None)
Quarter: 2010Q1

REPORT INFORMATION
  Report Type: 
  Country: None (occurrence: None)
  Receive Date: 20100128
  Receipt Date: 20090121
  Transmission Date: 20100710
  Serious: No
  Sender: FDA-Public Use
  Company Number: A0765512A

PATIENT
  Age: 29 Year
  Sex: Female

DRUGS (3)
  1. WELLBUTRIN [Suspect]
     Indication: DRUG USE FOR UNKNOWN INDICATION
     Route: 048
  2. CYMBALTA [Suspect]
     Indication: DRUG USE FOR UNKNOWN INDICATION
     Route: 048
  3. ALCOHOL [Suspect]

REACTIONS (5)
  - AGITATION [None]
  - BLOOD ALCOHOL INCREASED [None]
  - DRUG INTERACTION [None]
  - ROAD TRAFFIC ACCIDENT [None]
  - SERUM SEROTONIN INCREASED [None]
